FAERS Safety Report 24097016 (Version 1)
Quarter: 2024Q3

REPORT INFORMATION
  Report Type: Spontaneous
  Country: US (occurrence: US)
  Receive Date: 20240716
  Receipt Date: 20240716
  Transmission Date: 20241016
  Serious: No
  Sender: GRIFOLS
  Company Number: US-IGSA-BIG0028405

PATIENT
  Age: 49 Year
  Sex: Female
  Weight: 78.7 kg

DRUGS (16)
  1. GAMUNEX-C [Suspect]
     Active Substance: HUMAN IMMUNOGLOBULIN G
     Indication: Small fibre neuropathy
     Dosage: 1 GRAM PER KILOGRAM, Q.3WK.
     Route: 042
     Dates: start: 20240314
  2. GAMUNEX-C [Suspect]
     Active Substance: HUMAN IMMUNOGLOBULIN G
     Indication: Off label use
     Dosage: 1 GRAM PER KILOGRAM, Q.3WK.
     Route: 042
     Dates: start: 202401
  3. FAMOTIDINE [Concomitant]
     Active Substance: FAMOTIDINE
     Indication: Premedication
     Dosage: 20 MILLIGRAM
     Route: 042
     Dates: start: 202403
  4. DIPHENHYDRAMINE [Concomitant]
     Active Substance: DIPHENHYDRAMINE
     Indication: Premedication
     Dosage: 25 MILLIGRAM
     Route: 042
  5. ACETAMINOPHEN [Concomitant]
     Active Substance: ACETAMINOPHEN
     Indication: Premedication
     Dosage: 2 GRAM
     Route: 048
  6. BOTOX [Concomitant]
     Active Substance: ONABOTULINUMTOXINA
  7. PREGABALIN [Concomitant]
     Active Substance: PREGABALIN
  8. NALTREXONE [Concomitant]
     Active Substance: NALTREXONE
  9. LORAZEPAM [Concomitant]
     Active Substance: LORAZEPAM
  10. ASPIRIN [Concomitant]
     Active Substance: ASPIRIN
  11. LOSARTAN [Concomitant]
     Active Substance: LOSARTAN
  12. NURTEC ODT [Concomitant]
     Active Substance: RIMEGEPANT SULFATE
  13. LEVOTHYROXINE AND LIOTHYRONINE [THYROID] [Concomitant]
  14. CHOLECALCIFEROL [Concomitant]
     Active Substance: CHOLECALCIFEROL
  15. CYCLOBENZAPRINE [Concomitant]
     Active Substance: CYCLOBENZAPRINE
  16. ZOLPIDEM [Concomitant]
     Active Substance: ZOLPIDEM TARTRATE

REACTIONS (4)
  - Pruritus [Recovered/Resolved]
  - Swollen tongue [Recovered/Resolved]
  - Lip swelling [Recovered/Resolved with Sequelae]
  - Headache [Recovered/Resolved]

NARRATIVE: CASE EVENT DATE: 20240314
